FAERS Safety Report 8994694 (Version 1)
Quarter: 2012Q4

REPORT INFORMATION
  Report Type: Spontaneous
  Country: US (occurrence: None)
  Receive Date: 20121228
  Receipt Date: 20121228
  Transmission Date: 20130627
  Serious: Yes (Other)
  Sender: FDA-Public Use
  Company Number: None

PATIENT
  Age: 64 Year
  Sex: Female
  Weight: 56.7 kg

DRUGS (1)
  1. CIPROFLOXACIN HCL [Suspect]
     Indication: DIVERTICULITIS
     Route: 048
     Dates: start: 20121217, end: 20121219

REACTIONS (4)
  - Arthralgia [None]
  - Arthralgia [None]
  - Musculoskeletal pain [None]
  - Tendon pain [None]
